FAERS Safety Report 10755760 (Version 2)
Quarter: 2015Q2

REPORT INFORMATION
  Report Type: Spontaneous
  Country: IT (occurrence: IT)
  Receive Date: 20150202
  Receipt Date: 20150428
  Transmission Date: 20150821
  Serious: Yes (Hospitalization)
  Sender: FDA-Public Use
  Company Number: IT-SA-2015SA008814

PATIENT
  Age: 76 Year
  Sex: Female

DRUGS (4)
  1. CARDIOASPIRIN [Concomitant]
     Active Substance: ASPIRIN
  2. LASIX [Suspect]
     Active Substance: FUROSEMIDE
     Indication: HYPERTENSION
     Route: 048
     Dates: start: 20150117, end: 20150118
  3. ENALAPRIL MALEATE AND HYDROCHLOROTHIAZIDE [Suspect]
     Active Substance: ENALAPRIL MALEATE\HYDROCHLOROTHIAZIDE
     Indication: PRODUCT USED FOR UNKNOWN INDICATION
     Route: 048
     Dates: start: 20150117, end: 20150118
  4. LANSOPRAZOLE. [Concomitant]
     Active Substance: LANSOPRAZOLE

REACTIONS (3)
  - Vomiting [Recovering/Resolving]
  - Syncope [Recovering/Resolving]
  - Renal failure [Recovering/Resolving]

NARRATIVE: CASE EVENT DATE: 20150118
